FAERS Safety Report 15862433 (Version 2)
Quarter: 2019Q1

REPORT INFORMATION
  Report Type: Spontaneous
  Country: US (occurrence: US)
  Receive Date: 20190124
  Receipt Date: 20190228
  Transmission Date: 20190417
  Serious: Yes (Other)
  Sender: FDA-Public Use
  Company Number: US-BAYER-2019-015154

PATIENT
  Age: 33 Year
  Sex: Female
  Weight: 92.52 kg

DRUGS (3)
  1. SKYLA [Suspect]
     Active Substance: LEVONORGESTREL
     Indication: CONTRACEPTION
     Dosage: 14 MCG/24HR, CONT
     Route: 015
  2. SKYLA [Suspect]
     Active Substance: LEVONORGESTREL
     Indication: CONTRACEPTION
     Dosage: 14 MCG/24HR, CONT
     Route: 015
     Dates: start: 20190114, end: 20190114
  3. CYTOTEC [Concomitant]
     Active Substance: MISOPROSTOL
     Dosage: 200 MG

REACTIONS (4)
  - Device use issue [None]
  - Device deployment issue [Recovered/Resolved]
  - Complication of device insertion [None]
  - Embedded device [Recovered/Resolved]

NARRATIVE: CASE EVENT DATE: 20190114
